FAERS Safety Report 4679166-4 (Version None)
Quarter: 2005Q2

REPORT INFORMATION
  Report Type: 
  Country: None (occurrence: None)
  Receive Date: 20050526
  Receipt Date: 20050307
  Transmission Date: 20051028
  Serious: Yes (Disabling)
  Sender: FDA-Public Use
  Company Number: WAES 0503USA01024

PATIENT
  Age: 73 Year
  Sex: Male

DRUGS (16)
  1. VYTORIN [Suspect]
     Indication: HYPERCHOLESTEROLAEMIA
     Dosage: 10-40 MG/DAILY/PO
     Route: 048
     Dates: start: 20050101
  2. ACTIOS [Concomitant]
  3. ALLEGRA [Concomitant]
  4. AVODART [Concomitant]
  5. DIOVAN [Concomitant]
  6. K-DUR 10 [Concomitant]
  7. PAXIL [Concomitant]
  8. PLAVIX [Concomitant]
  9. PROTONIX [Concomitant]
  10. VERELAN [Concomitant]
  11. DIAZEPAM [Concomitant]
  12. DIGOXIN [Concomitant]
  13. FUROSEMIDE [Concomitant]
  14. GLIPIZIDE [Concomitant]
  15. TERAZOSIN HYDROCHLORIDE [Concomitant]
  16. WARFARIN [Concomitant]

REACTIONS (3)
  - ARTHRALGIA [None]
  - BACK PAIN [None]
  - MUSCLE SPASMS [None]
